FAERS Safety Report 19720216 (Version 1)
Quarter: 2021Q3

REPORT INFORMATION
  Report Type: Spontaneous
  Country: US (occurrence: US)
  Receive Date: 20210819
  Receipt Date: 20210819
  Transmission Date: 20211014
  Serious: Yes (Disabling)
  Sender: FDA-Public Use
  Company Number: None

PATIENT
  Age: 41 Year
  Sex: Female
  Weight: 74.25 kg

DRUGS (4)
  1. CHLORAPREP [Suspect]
     Active Substance: CHLORHEXIDINE GLUCONATE\ISOPROPYL ALCOHOL
     Indication: STERILISATION
     Dates: start: 20210804, end: 20210804
  2. PREDNISONE. [Concomitant]
     Active Substance: PREDNISONE
  3. CLOBETASOL [Concomitant]
     Active Substance: CLOBETASOL
  4. CEFDINIR. [Concomitant]
     Active Substance: CEFDINIR

REACTIONS (3)
  - Blister [None]
  - Infection [None]
  - Rash [None]

NARRATIVE: CASE EVENT DATE: 20210804
